FAERS Safety Report 25161472 (Version 1)
Quarter: 2025Q2

REPORT INFORMATION
  Report Type: Spontaneous
  Country: US (occurrence: None)
  Receive Date: 20250404
  Receipt Date: 20250404
  Transmission Date: 20250717
  Serious: No
  Sender: FDA-CTU
  Company Number: None

PATIENT
  Age: 26 Year
  Sex: Female

DRUGS (2)
  1. INFLECTRA [Suspect]
     Active Substance: INFLIXIMAB-DYYB
  2. Inflectra Infusions [Concomitant]

REACTIONS (2)
  - Maternal exposure during pregnancy [None]
  - Haemorrhage [None]

NARRATIVE: CASE EVENT DATE: 20250403
